FAERS Safety Report 9339008 (Version 1)
Quarter: 2013Q2

REPORT INFORMATION
  Report Type: Spontaneous
  Country: US (occurrence: None)
  Receive Date: 20130606
  Receipt Date: 20130606
  Transmission Date: 20140414
  Serious: No
  Sender: FDA-Public Use
  Company Number: None

PATIENT
  Sex: Female
  Weight: 118.39 kg

DRUGS (1)
  1. ESCITALOPRAM [Suspect]
     Indication: DEPRESSION
     Dosage: 1 TAB DAILY
     Route: 048

REACTIONS (4)
  - Irritability [None]
  - Depressive symptom [None]
  - Disease recurrence [None]
  - Product substitution issue [None]
